FAERS Safety Report 8928880 (Version 2)
Quarter: 2012Q4

REPORT INFORMATION
  Report Type: 
  Country: US (occurrence: US)
  Receive Date: 20121128
  Receipt Date: 20121129
  Transmission Date: 20130627
  Serious: No
  Sender: FDA-Public Use
  Company Number: US-PFIZER INC-2012296583

PATIENT
  Age: 78 Year
  Sex: Female
  Weight: 55.78 kg

DRUGS (5)
  1. GABAPENTIN [Suspect]
     Indication: NERVE COMPRESSION
     Dosage: 300 mg, 3x/day
     Route: 048
     Dates: start: 20120913, end: 201210
  2. GABAPENTIN [Suspect]
     Dosage: 300 mg, 2x/day
     Route: 048
     Dates: start: 2012
  3. GABAPENTIN [Suspect]
     Dosage: 300 mg, UNK
     Route: 048
  4. METOPROLOL [Concomitant]
     Indication: BLOOD PRESSURE HIGH
     Dosage: UNK, 2x/day
  5. HYDROCHLOROTHIAZID [Concomitant]
     Indication: BLOOD PRESSURE HIGH
     Dosage: UNK

REACTIONS (6)
  - Pain in extremity [Recovered/Resolved]
  - Gait disturbance [Recovered/Resolved]
  - Insomnia [Recovered/Resolved]
  - Blood test abnormal [Unknown]
  - Drug ineffective [Recovered/Resolved]
  - Feeling abnormal [Recovered/Resolved]
